FAERS Safety Report 6779280-3 (Version None)
Quarter: 2010Q2

REPORT INFORMATION
  Report Type: 
  Country: None (occurrence: None)
  Receive Date: 20100618
  Receipt Date: 20100614
  Transmission Date: 20101027
  Serious: Yes (Hospitalization, Other)
  Sender: FDA-Public Use
  Company Number: AT-ROXANE LABORATORIES, INC.-2010-RO-00707RO

PATIENT
  Age: 43 Year
  Sex: Male

DRUGS (6)
  1. LAMOTRIGINE [Suspect]
     Indication: DEPRESSION
  2. LITHIUM CARBONATE CAP [Suspect]
     Indication: BIPOLAR DISORDER
  3. LORAZEPAM [Suspect]
  4. CLOZAPINE [Suspect]
     Indication: BIPOLAR DISORDER
  5. CLOZAPINE [Suspect]
     Dosage: 350 MG
     Route: 048
  6. CLOZAPINE [Suspect]
     Dosage: 100 MG
     Route: 048

REACTIONS (7)
  - DEPRESSION [None]
  - DERMATITIS ALLERGIC [None]
  - DIZZINESS [None]
  - DRUG ERUPTION [None]
  - DRUG INEFFECTIVE [None]
  - DRUG TOXICITY [None]
  - UPPER RESPIRATORY TRACT INFECTION [None]
